FAERS Safety Report 6827684-2 (Version None)
Quarter: 2010Q3

REPORT INFORMATION
  Report Type: 
  Country: None (occurrence: None)
  Receive Date: 20100709
  Receipt Date: 20070124
  Transmission Date: 20110219
  Serious: Yes (Other)
  Sender: FDA-Public Use
  Company Number: US-PFIZER INC-2007006863

PATIENT
  Sex: Female
  Weight: 77.1 kg

DRUGS (10)
  1. CHANTIX [Suspect]
     Indication: SMOKING CESSATION THERAPY
     Dates: start: 20061225
  2. AMITRIPTYLINE HYDROCHLORIDE [Concomitant]
  3. RISPERDAL [Concomitant]
  4. TEGRETOL [Concomitant]
  5. VALIUM [Concomitant]
  6. MONTELUKAST SODIUM [Concomitant]
  7. DETROL [Concomitant]
  8. ALL OTHER THERAPEUTIC PRODUCTS [Concomitant]
  9. ALBUTEROL [Concomitant]
  10. ADVAIR DISKUS 100/50 [Concomitant]

REACTIONS (5)
  - BLOOD GLUCOSE DECREASED [None]
  - DEPRESSION [None]
  - DIZZINESS [None]
  - DRUG INEFFECTIVE [None]
  - VISION BLURRED [None]
